FAERS Safety Report 16731062 (Version 1)
Quarter: 2019Q4

REPORT INFORMATION
  Report Type: Spontaneous
  Country: US (occurrence: US)
  Receive Date: 20190822
  Receipt Date: 20190822
  Transmission Date: 20200122
  Serious: Yes (Disabling)
  Sender: FDA-Public Use
  Company Number: None

PATIENT
  Age: 78 Year
  Sex: Male
  Weight: 72 kg

DRUGS (8)
  1. ASPIRIN. [Concomitant]
     Active Substance: ASPIRIN
  2. GLIMEPRIDE [Concomitant]
     Active Substance: GLIMEPIRIDE
  3. GABAPENTIN. [Concomitant]
     Active Substance: GABAPENTIN
  4. AMLODIPINE [Concomitant]
     Active Substance: AMLODIPINE BESYLATE
  5. REPATHA [Suspect]
     Active Substance: EVOLOCUMAB
     Indication: BLOOD CHOLESTEROL INCREASED
     Dosage: ?          QUANTITY:1 INJECTION(S);OTHER FREQUENCY:EVERY 2 WEEKS;OTHER ROUTE:INJECTION?
     Dates: start: 20190206, end: 20190306
  6. CLONIDINE. [Concomitant]
     Active Substance: CLONIDINE
  7. CLONAZEPAM. [Concomitant]
     Active Substance: CLONAZEPAM
  8. LEVOTHYROXINE. [Concomitant]
     Active Substance: LEVOTHYROXINE

REACTIONS (8)
  - Impaired driving ability [None]
  - Tooth disorder [None]
  - Hypertension [None]
  - Gingival recession [None]
  - Disorientation [None]
  - Visual field defect [None]
  - Eye pain [None]
  - Dysstasia [None]

NARRATIVE: CASE EVENT DATE: 20190301
